FAERS Safety Report 4754371-7 (Version None)
Quarter: 2005Q3

REPORT INFORMATION
  Report Type: 
  Country: None (occurrence: None)
  Receive Date: 20050825
  Receipt Date: 20050811
  Transmission Date: 20060218
  Serious: Yes (Hospitalization)
  Sender: FDA-Public Use
  Company Number: 187239

PATIENT
  Sex: Female
  Weight: 64.4108 kg

DRUGS (2)
  1. AVONEX [Suspect]
     Indication: MULTIPLE SCLEROSIS
     Dosage: 30 UG; QW; IM
     Route: 030
     Dates: start: 20020101, end: 20030101
  2. AVONEX [Suspect]
     Indication: MULTIPLE SCLEROSIS
     Dosage: 30 UG; QW; IM
     Route: 030
     Dates: start: 20030101

REACTIONS (10)
  - AGITATION [None]
  - ARTERIAL OCCLUSIVE DISEASE [None]
  - FALL [None]
  - FEELING JITTERY [None]
  - FOOT FRACTURE [None]
  - NIGHTMARE [None]
  - PAIN [None]
  - PELVIC PAIN [None]
  - UTERINE ATONY [None]
  - VISION BLURRED [None]
